FAERS Safety Report 8827754 (Version 2)
Quarter: 2013Q1

REPORT INFORMATION
  Report Type: Spontaneous
  Country: US (occurrence: US)
  Receive Date: 20121008
  Receipt Date: 20130115
  Transmission Date: 20140127
  Serious: Yes (Hospitalization)
  Sender: FDA-Public Use
  Company Number: US-PFIZER INC-2012246974

PATIENT
  Age: 83 Year
  Sex: Female
  Weight: 58.96 kg

DRUGS (10)
  1. ATORVASTATIN CALCIUM [Suspect]
     Indication: BLOOD CHOLESTEROL INCREASED
     Dosage: 20 MG, ONCE DAILY
     Route: 048
     Dates: start: 201207, end: 2012
  2. ATORVASTATIN CALCIUM [Suspect]
     Dosage: 20 MG, 1X/DAY
     Dates: start: 2012, end: 2012
  3. ANTIVERT [Suspect]
     Indication: INNER EAR DISORDER
     Dosage: 25 MG, 1X/DAY
     Dates: start: 20121114, end: 20121116
  4. PHENOBARBITAL [Concomitant]
     Indication: CONVULSION
     Dosage: ^97.2^ MG,DAILY
  5. NEXIUM [Concomitant]
     Indication: GASTRIC DISORDER
     Dosage: UNK
  6. POTASSIUM [Concomitant]
     Dosage: UNK
  7. VITAMIN E [Concomitant]
     Dosage: UNK
  8. ACETYLSALICYLIC ACID [Concomitant]
     Dosage: UNK
  9. WARFARIN SODIUM [Concomitant]
     Dosage: UNK
  10. CALCIUM [Concomitant]
     Dosage: UNK

REACTIONS (7)
  - Fall [Recovering/Resolving]
  - Lower limb fracture [Recovering/Resolving]
  - Abdominal pain upper [Unknown]
  - Diarrhoea [Recovered/Resolved with Sequelae]
  - Nausea [Unknown]
  - Gastric disorder [Unknown]
  - Dizziness [Recovered/Resolved]
